FAERS Safety Report 19566751 (Version 1)
Quarter: 2021Q3

REPORT INFORMATION
  Report Type: Spontaneous
  Country: CN (occurrence: CN)
  Receive Date: 20210716
  Receipt Date: 20210716
  Transmission Date: 20211014
  Serious: Yes (Death, Other)
  Sender: FDA-Public Use
  Company Number: CN-ROCHE-2866310

PATIENT
  Age: 37 Year
  Sex: Male

DRUGS (3)
  1. LORLATINIB [Concomitant]
     Active Substance: LORLATINIB
     Indication: BRONCHIAL CARCINOMA
     Route: 048
     Dates: start: 20210528
  2. ALECENSA [Suspect]
     Active Substance: ALECTINIB HYDROCHLORIDE
     Indication: BRONCHIAL CARCINOMA
     Route: 048
     Dates: start: 20210506
  3. CRIZOTINIB [Concomitant]
     Active Substance: CRIZOTINIB
     Indication: BRONCHIAL CARCINOMA
     Route: 048

REACTIONS (3)
  - Septic shock [Unknown]
  - Acute kidney injury [Unknown]
  - Death [Fatal]

NARRATIVE: CASE EVENT DATE: 20210623
